FAERS Safety Report 6763438-3 (Version None)
Quarter: 2010Q2

REPORT INFORMATION
  Report Type: 
  Country: None (occurrence: None)
  Receive Date: 20100610
  Receipt Date: 20100528
  Transmission Date: 20101027
  Serious: No
  Sender: FDA-Public Use
  Company Number: US-B.I. PHARMACEUTICALS,INC./RIDGEFIELD-2010-BP-06052BP

PATIENT
  Age: 74 Year
  Sex: Male

DRUGS (2)
  1. FLOMAX [Suspect]
     Indication: BENIGN PROSTATIC HYPERPLASIA
     Dosage: 0.4 MG
     Route: 048
     Dates: start: 20060101, end: 20060101
  2. FLOMAX [Suspect]
     Dosage: 0.8 MG
     Route: 048
     Dates: start: 20060101

REACTIONS (2)
  - FATIGUE [None]
  - POLLAKIURIA [None]
